FAERS Safety Report 21688567 (Version 4)
Quarter: 2023Q1

REPORT INFORMATION
  Report Type: Spontaneous
  Country: US (occurrence: US)
  Receive Date: 20221206
  Receipt Date: 20230323
  Transmission Date: 20230417
  Serious: Yes (Hospitalization, Other)
  Sender: FDA-Public Use
  Company Number: US-PFIZER INC-202201348896

PATIENT
  Age: 81 Year
  Sex: Female
  Weight: 52.16 kg

DRUGS (6)
  1. ESTROPIPATE [Suspect]
     Active Substance: ESTROPIPATE
     Dosage: UNK, 1X/DAY
     Route: 048
  2. ESTROPIPATE [Suspect]
     Active Substance: ESTROPIPATE
     Dosage: UNK, ALTERNATE DAY
  3. MEDROXYPROGESTERONE ACETATE [Suspect]
     Active Substance: MEDROXYPROGESTERONE ACETATE
     Dosage: UNK, 1X/DAY
     Route: 048
  4. MEDROXYPROGESTERONE ACETATE [Suspect]
     Active Substance: MEDROXYPROGESTERONE ACETATE
     Dosage: UNK, ALTERNATE DAY
  5. SYNTHROID [Concomitant]
     Active Substance: LEVOTHYROXINE SODIUM
     Indication: Thyroid disorder
     Dosage: 175 MG
  6. SYNTHROID [Concomitant]
     Active Substance: LEVOTHYROXINE SODIUM
     Dosage: 150 MG, 1X/DAY
     Route: 048

REACTIONS (2)
  - Myocardial infarction [Not Recovered/Not Resolved]
  - Thrombosis [Not Recovered/Not Resolved]
